FAERS Safety Report 5475038-6 (Version None)
Quarter: 2007Q3

REPORT INFORMATION
  Report Type: 
  Country: None (occurrence: None)
  Receive Date: 20070831
  Receipt Date: 20070409
  Transmission Date: 20080115
  Serious: Yes (Life-Threatening)
  Sender: FDA-Public Use
  Company Number: 262602

PATIENT
  Age: 91 Year
  Sex: Male

DRUGS (1)
  1. NOVOLIN R [Suspect]
     Indication: INSULIN-REQUIRING TYPE II DIABETES MELLITUS
     Dosage: SUBCUTANEOUS
     Route: 058
     Dates: start: 20060801, end: 20060101

REACTIONS (2)
  - BLOOD GLUCOSE INCREASED [None]
  - HYPERSENSITIVITY [None]
